FAERS Safety Report 23657504 (Version 1)
Quarter: 2024Q1

REPORT INFORMATION
  Report Type: Spontaneous
  Country: JP (occurrence: JP)
  Receive Date: 20240321
  Receipt Date: 20240321
  Transmission Date: 20240410
  Serious: Yes (Death, Other)
  Sender: FDA-Public Use
  Company Number: JP-AJANTA-2024AJA00042

PATIENT
  Age: 73 Year
  Sex: Female

DRUGS (3)
  1. TOFACITINIB [Suspect]
     Active Substance: TOFACITINIB
     Indication: Interstitial lung disease
  2. TOFACITINIB [Suspect]
     Active Substance: TOFACITINIB
     Indication: Drug resistance
  3. CYCLOPHOSPHAMIDE [Concomitant]
     Active Substance: CYCLOPHOSPHAMIDE

REACTIONS (5)
  - Pneumothorax [Fatal]
  - Pneumomediastinum [Fatal]
  - Cytopenia [Fatal]
  - Angina pectoris [Fatal]
  - Cytomegalovirus infection reactivation [Fatal]
